FAERS Safety Report 5874184-2 (Version None)
Quarter: 2008Q3

REPORT INFORMATION
  Report Type: 
  Country: None (occurrence: None)
  Receive Date: 20080908
  Receipt Date: 20080829
  Transmission Date: 20090109
  Serious: Yes (Life-Threatening)
  Sender: FDA-Public Use
  Company Number: JP-SANOFI-SYNTHELABO-A01200810439

PATIENT
  Sex: Male

DRUGS (4)
  1. LEVOFOLINATE [Concomitant]
     Dosage: UNK
     Route: 065
     Dates: start: 20080804, end: 20080804
  2. FLUOROURACIL [Suspect]
     Route: 042
     Dates: start: 20080804, end: 20080806
  3. AVASTIN [Suspect]
     Route: 041
     Dates: start: 20080804, end: 20080804
  4. ELPLAT [Suspect]
     Indication: COLON CANCER METASTATIC
     Route: 042
     Dates: start: 20080804, end: 20080804

REACTIONS (1)
  - LARGE INTESTINE PERFORATION [None]
